FAERS Safety Report 17693830 (Version 2)
Quarter: 2020Q3

REPORT INFORMATION
  Report Type: Spontaneous
  Country: US (occurrence: US)
  Receive Date: 20200422
  Receipt Date: 20200729
  Transmission Date: 20201102
  Serious: Yes (Death, Other)
  Sender: FDA-Public Use
  Company Number: US-NAPPMUNDI-USA-2020-0151836

PATIENT
  Age: 49 Year
  Sex: Male

DRUGS (4)
  1. TYLENOL WITH CODEINE [Suspect]
     Active Substance: ACETAMINOPHEN\CODEINE PHOSPHATE
     Indication: BACK PAIN
     Dosage: UNK UNK, DAILY
     Route: 065
     Dates: start: 1992
  2. PERCOCET [Suspect]
     Active Substance: ACETAMINOPHEN\OXYCODONE HYDROCHLORIDE
     Indication: BACK PAIN
     Dosage: UNK UNK, DAILY
     Route: 065
     Dates: start: 1992
  3. OXYCONTIN [Suspect]
     Active Substance: OXYCODONE HYDROCHLORIDE
     Indication: BACK PAIN
     Dosage: UNK, DAILY
     Route: 048
     Dates: start: 1992
  4. VICODIN [Suspect]
     Active Substance: ACETAMINOPHEN\HYDROCODONE BITARTRATE
     Indication: BACK PAIN
     Dosage: UNK, DAILY
     Route: 065
     Dates: start: 1992

REACTIONS (3)
  - Drug abuse [Unknown]
  - Drug dependence [Fatal]
  - Cardiac failure [Fatal]

NARRATIVE: CASE EVENT DATE: 1992
